FAERS Safety Report 16569017 (Version 1)
Quarter: 2019Q3

REPORT INFORMATION
  Report Type: Spontaneous
  Country: FR (occurrence: FR)
  Receive Date: 20190713
  Receipt Date: 20190713
  Transmission Date: 20191004
  Serious: Yes (Hospitalization)
  Sender: FDA-Public Use
  Company Number: PHHY2019FR159471

PATIENT
  Age: 44 Year
  Sex: Female
  Weight: 94 kg

DRUGS (1)
  1. AMOXICILLIN. [Suspect]
     Active Substance: AMOXICILLIN
     Indication: PERITONSILLAR ABSCESS
     Dosage: 2 G, QD
     Route: 048
     Dates: start: 20190516, end: 20190521

REACTIONS (1)
  - Vasculitis necrotising [Recovering/Resolving]

NARRATIVE: CASE EVENT DATE: 20190521
